FAERS Safety Report 10596384 (Version 2)
Quarter: 2015Q1

REPORT INFORMATION
  Report Type: Not Available
  Country: DE (occurrence: DE)
  Receive Date: 20141120
  Receipt Date: 20150210
  Transmission Date: 20150720
  Serious: Yes (Congenital Anomaly)
  Sender: FDA-Public Use
  Company Number: DE-MUNDIPHARMA DS AND PHARMACOVIGILANCE-DEU-2014-0015753

PATIENT
  Sex: Male
  Weight: 1.78 kg

DRUGS (4)
  1. ALLERGOSPASMIN [Concomitant]
     Indication: FOETAL EXPOSURE DURING PREGNANCY
     Route: 064
  2. OXYGESIC [Suspect]
     Active Substance: OXYCODONE
     Indication: FOETAL EXPOSURE DURING PREGNANCY
     Dosage: 5 MG, TID
     Route: 064
     Dates: end: 20130726
  3. OXYGESIC [Suspect]
     Active Substance: OXYCODONE
     Dosage: 20 MG, BID
     Route: 064
     Dates: start: 20121203
  4. VENTOLAIR [Concomitant]
     Active Substance: BECLOMETHASONE DIPROPIONATE
     Indication: FOETAL EXPOSURE DURING PREGNANCY
     Dosage: UNK UNK, DAILY
     Route: 064
     Dates: start: 20121203, end: 20130122

REACTIONS (2)
  - Transposition of the great vessels [Unknown]
  - Foetal exposure during pregnancy [Unknown]

NARRATIVE: CASE EVENT DATE: 20121203
